FAERS Safety Report 16251011 (Version 3)
Quarter: 2019Q4

REPORT INFORMATION
  Report Type: Spontaneous
  Country: US (occurrence: US)
  Receive Date: 20190429
  Receipt Date: 20191231
  Transmission Date: 20200122
  Serious: Yes (Other)
  Sender: FDA-Public Use
  Company Number: US-PFIZER INC-2018164178

PATIENT
  Age: 43 Year
  Sex: Female
  Weight: 85.71 kg

DRUGS (5)
  1. LYRICA [Suspect]
     Active Substance: PREGABALIN
     Indication: PAIN
     Dosage: 50 MG, UNK
     Route: 048
  2. LYRICA [Suspect]
     Active Substance: PREGABALIN
     Dosage: 1 TO 2 DF, DAILY
     Route: 048
  3. LYRICA [Suspect]
     Active Substance: PREGABALIN
     Dosage: 100 MG, 3X/DAY
     Route: 048
     Dates: start: 2017
  4. LYRICA [Suspect]
     Active Substance: PREGABALIN
     Indication: FIBROMYALGIA
     Dosage: 75 MG, THRICE DAILY
     Route: 048
     Dates: start: 20180803, end: 20181101
  5. LYRICA [Suspect]
     Active Substance: PREGABALIN
     Dosage: 100 MG, THRICE DAILY
     Route: 048
     Dates: start: 20190403

REACTIONS (8)
  - Pain [Unknown]
  - Depression [Unknown]
  - Temperature intolerance [Unknown]
  - Bipolar II disorder [Unknown]
  - Myofascial spasm [Not Recovered/Not Resolved]
  - Intentional product misuse [Unknown]
  - Weight decreased [Unknown]
  - Intervertebral disc degeneration [Not Recovered/Not Resolved]

NARRATIVE: CASE EVENT DATE: 20190410
